FAERS Safety Report 8833033 (Version 3)
Quarter: 2014Q2

REPORT INFORMATION
  Report Type: Spontaneous
  Country: US (occurrence: US)
  Receive Date: 20121010
  Receipt Date: 20131018
  Transmission Date: 20141212
  Serious: Yes (Other)
  Sender: FDA-Public Use
  Company Number: US-PFIZER INC-2012247738

PATIENT
  Age: 45 Year
  Sex: Male
  Weight: 97.51 kg

DRUGS (1)
  1. DEPO-MEDROL [Suspect]
     Dosage: 40 MG, UNK
     Dates: start: 20120827, end: 2012

REACTIONS (1)
  - Meningitis [Unknown]
